FAERS Safety Report 9095245 (Version 1)
Quarter: 2013Q1

REPORT INFORMATION
  Report Type: Spontaneous
  Country: US (occurrence: None)
  Receive Date: 20130123
  Receipt Date: 20130123
  Transmission Date: 20140127
  Serious: Yes (Hospitalization, Other)
  Sender: FDA-Public Use
  Company Number: 2012-004243

PATIENT
  Age: 72 Year
  Sex: Female
  Weight: 69.5 kg

DRUGS (22)
  1. ACTONEL [Suspect]
     Indication: OSTEOPOROSIS
     Route: 048
     Dates: start: 200306, end: 20090113
  2. ALENDRONATE SODIUM (ALENDRONATE SODIUM) (ALENDRONATE SODIUM) [Suspect]
     Indication: OSTEOPOROSIS
     Route: 048
     Dates: start: 20090113, end: 201011
  3. ALENDRONATE SODIUM (ALENDRONATE SODIUM) (ALENDRONATE SODIUM) [Suspect]
     Indication: OSTEOPOROSIS PROPHYLAXIS
     Route: 048
     Dates: start: 20090113, end: 201011
  4. HUMULIN N (INSULIN HUMAN INJECTION, ISOPHANE) [Concomitant]
  5. METHOTREXATE (METHOTREXATE) [Concomitant]
  6. FOLIC ACID (FOLIC ACID) [Concomitant]
  7. ECONOPRED/00016201/(PREDNISOLONE) [Concomitant]
  8. ALEVE (NAPROXEN SODIUM) [Concomitant]
  9. TYLENOL W/CODEINE (CODEINE PHOSPHATE, PARACETAMOL) [Concomitant]
  10. TOPROL (METOPROLOL SUCCINATE) [Concomitant]
  11. ZESTRIL (LISINOPRIL) [Concomitant]
  12. COZAAR (LOSARTAN POTASSIUM) [Concomitant]
  13. AVAPRO (IRBESARTAN) [Concomitant]
  14. ASPIRIN (E.C.)(ACETYLSALICYLIC ACID) [Concomitant]
  15. LIPITOR (ATORVASTATIN CALCIUM) [Concomitant]
  16. QUESTRAN (COLESTYRAMINE) [Concomitant]
  17. PREMARIN (ESTROGENS CONJUGATED) [Concomitant]
  18. LORAZEPAM (LORAZEPAM) [Concomitant]
  19. CALCIUM PLUS D3 (CALCIUM, COLECALCIFEROL) [Concomitant]
  20. MULTIVITAMIN/00831701/(VITAMINS NOS) [Concomitant]
  21. VITAMIN C/00008001/(ASCORBIC ACID) [Concomitant]
  22. VITAMIN E/00110501/(TOCOPHEROL) [Concomitant]

REACTIONS (7)
  - Fall [None]
  - Atypical femur fracture [None]
  - Fracture displacement [None]
  - Stress fracture [None]
  - Pain in extremity [None]
  - Groin pain [None]
  - Low turnover osteopathy [None]
